FAERS Safety Report 6469688-8 (Version None)
Quarter: 2009Q4

REPORT INFORMATION
  Report Type: 
  Country: None (occurrence: None)
  Receive Date: 20091203
  Receipt Date: 20080210
  Transmission Date: 20100525
  Serious: Yes (Hospitalization)
  Sender: FDA-Public Use
  Company Number: US-ELI_LILLY_AND_COMPANY-US200710007498

PATIENT
  Sex: Male
  Weight: 80.272 kg

DRUGS (14)
  1. CYMBALTA [Suspect]
     Indication: PAIN
     Dosage: 20 MG, DAILY (1/D)
     Dates: start: 20060801, end: 20060901
  2. CYMBALTA [Suspect]
     Dosage: 60 MG, DAILY (1/D)
     Dates: start: 20060918, end: 20061018
  3. CYMBALTA [Suspect]
     Dosage: 30 MG, DAILY (1/D)
     Dates: start: 20070117, end: 20070124
  4. CYMBALTA [Suspect]
     Dosage: 60 MG, DAILY (1/D)
     Dates: start: 20070124, end: 20071025
  5. ALCOHOL [Concomitant]
  6. LACTULOSE [Concomitant]
     Indication: CONSTIPATION
     Dosage: 20 G, DAILY (1/D)
  7. MULTI-VITAMIN [Concomitant]
     Dosage: 1 D/F, DAILY (1/D)
  8. SPIRONO [Concomitant]
     Indication: ASCITES
     Dosage: 50 MG, 2/D
  9. THIAMINE [Concomitant]
     Dosage: 100 MG, DAILY (1/D)
  10. TRAZODIL [Concomitant]
     Indication: INSOMNIA
     Dosage: 200 MG, EACH EVENING
  11. TRAMADOL HCL [Concomitant]
     Indication: BACK PAIN
     Dosage: 50 MG, 4/D
  12. BUSPIRONE HCL [Concomitant]
     Indication: ANXIETY
     Dosage: 15 MG, 2/D
  13. ETODOLAC [Concomitant]
     Indication: BACK PAIN
     Dosage: 300 MG, TID AS NEEDED
  14. ZOLPIDEM [Concomitant]
     Indication: INSOMNIA
     Dosage: 10 MG, EACH EVENING

REACTIONS (8)
  - ALCOHOLISM [None]
  - BLOOD CREATINE PHOSPHOKINASE INCREASED [None]
  - CIRRHOSIS ALCOHOLIC [None]
  - DELIRIUM TREMENS [None]
  - HEPATITIS C [None]
  - HOMICIDAL IDEATION [None]
  - SUBSTANCE ABUSE [None]
  - SUICIDAL IDEATION [None]
